FAERS Safety Report 14563548 (Version 1)
Quarter: 2018Q1

REPORT INFORMATION
  Report Type: Report from Study
  Country: US (occurrence: US)
  Receive Date: 20180222
  Receipt Date: 20180222
  Transmission Date: 20180509
  Serious: Yes (Hospitalization, Other)
  Sender: FDA-Public Use
  Company Number: US-PFIZER INC-2017137661

PATIENT
  Age: 60 Year
  Sex: Male
  Weight: 72.56 kg

DRUGS (17)
  1. EXCEDRIN /00509701/ [Concomitant]
     Dosage: 1 DF, AS NEEDED [PARACETAMOL 500 MG]/[ CAFFEINE 65 MG] 1 TABLET BY MOUTH DAILY
     Route: 048
  2. LORAZEPAM. [Concomitant]
     Active Substance: LORAZEPAM
     Indication: ANXIETY
     Dosage: 1 MG, AS NEEDED (EVERY 8 (EIGHT) HOURS)
     Route: 048
  3. ALEVE [Concomitant]
     Active Substance: NAPROXEN SODIUM
     Dosage: 220 MG, AS NEEDED (DAILY AS NEEDED)
     Route: 048
  4. SUTENT [Suspect]
     Active Substance: SUNITINIB MALATE
     Dosage: 50 MG, CYCLIC (DAILY- 2 WEEKS ON, 1 WEEK OFF)
     Dates: start: 20170425
  5. ALIGN [Concomitant]
     Active Substance: BIFIDOBACTERIUM LONGUM SUBSP. INFANTIS
     Dosage: 4 MG, DAILY
     Route: 048
  6. PROCTOZONE HC [Concomitant]
     Active Substance: HYDROCORTISONE
     Dosage: UNK UNK, DAILY (2.5 % RECTAL CREAM, APPLY AS DIRECTED DAILY)
  7. ONDANSETRON [Concomitant]
     Active Substance: ONDANSETRON
     Indication: NAUSEA
     Dosage: 8 MG, AS NEEDED (EVERY 8 (EIGHT) HOURS)
     Route: 048
  8. SUTENT [Suspect]
     Active Substance: SUNITINIB MALATE
     Dosage: 50 MG, UNK
     Dates: start: 20170505, end: 20180128
  9. ASPIRIN. [Concomitant]
     Active Substance: ASPIRIN
     Dosage: 81 MG, DAILY
     Route: 048
  10. LORAZEPAM. [Concomitant]
     Active Substance: LORAZEPAM
     Indication: SLEEP DISORDER
  11. IMODIUM A-D [Concomitant]
     Active Substance: LOPERAMIDE HYDROCHLORIDE
     Dosage: UNK UNK, AS NEEDED (TAKE 1-2 TABLETS)
     Route: 048
  12. COMPAZINE [Concomitant]
     Active Substance: PROCHLORPERAZINE MALEATE
     Dosage: 10 MG, AS NEEDED (EVERY 4 TO 6 HOURS AS NEEDED)
     Route: 048
  13. CITALOPRAM [Concomitant]
     Active Substance: CITALOPRAM HYDROBROMIDE
     Indication: DEPRESSION
     Dosage: 20 MG, 1X/DAY
     Route: 048
  14. ACETAMINOPHEN W/HYDROCODONE [Concomitant]
     Active Substance: ACETAMINOPHEN\HYDROCODONE
     Indication: PAIN
     Dosage: 1 DF, AS NEEDED [HYDROCODONE 5 MG]/[PARACETAMOL 325 MG] (EVERY 6 (SIX) HOURS)
     Route: 048
  15. SUTENT [Suspect]
     Active Substance: SUNITINIB MALATE
     Indication: GASTROINTESTINAL STROMAL TUMOUR
     Dosage: 50 MG, CYCLIC (DAILY X 28 DAYS, OFF TWO WEEKS/EVERY DAY FOR 28 DAYS (4 WEEKS), THEN OFF FOR 14 DAYS)
     Route: 048
     Dates: start: 20170324, end: 20170417
  16. PREVACID [Concomitant]
     Active Substance: LANSOPRAZOLE
     Dosage: 30 MG, DAILY
     Route: 048
  17. PSEUDOEPHEDRINE-CHLORPHENIRAMINE [Concomitant]
     Indication: HYPERSENSITIVITY
     Dosage: 4 MG, 2X/DAY (AM-PM )
     Route: 048

REACTIONS (34)
  - Enteritis [Recovered/Resolved]
  - Ageusia [Not Recovered/Not Resolved]
  - Liver function test increased [Unknown]
  - Abdominal discomfort [Unknown]
  - Thrombocytopenia [Not Recovered/Not Resolved]
  - Anxiety [Unknown]
  - Toothache [Unknown]
  - Anaemia [Unknown]
  - Vomiting [Unknown]
  - Neuropathy peripheral [Unknown]
  - Pain [Unknown]
  - Palmar-plantar erythrodysaesthesia syndrome [Unknown]
  - Nausea [Unknown]
  - Platelet count decreased [Unknown]
  - Pyrexia [Unknown]
  - Headache [Not Recovered/Not Resolved]
  - Constipation [Unknown]
  - Blood creatine phosphokinase increased [Unknown]
  - Rash [Unknown]
  - Malaise [Unknown]
  - Stomatitis [Unknown]
  - Dyspnoea [Unknown]
  - Disease recurrence [Not Recovered/Not Resolved]
  - Dry skin [Unknown]
  - Rash vesicular [Unknown]
  - Diarrhoea [Not Recovered/Not Resolved]
  - Myalgia [Unknown]
  - Fatigue [Recovering/Resolving]
  - Paraesthesia [Unknown]
  - Dysgeusia [Not Recovered/Not Resolved]
  - Skin warm [Unknown]
  - Herpes zoster [Not Recovered/Not Resolved]
  - Contusion [Unknown]
  - Neoplasm progression [Unknown]

NARRATIVE: CASE EVENT DATE: 2017
